FAERS Safety Report 17431847 (Version 3)
Quarter: 2020Q3

REPORT INFORMATION
  Report Type: Report from Study
  Country: US (occurrence: US)
  Receive Date: 20200218
  Receipt Date: 20200908
  Transmission Date: 20201102
  Serious: No
  Sender: FDA-Public Use
  Company Number: NVSC2020US044801

PATIENT
  Sex: Female

DRUGS (3)
  1. PIQRAY [Suspect]
     Active Substance: ALPELISIB
     Dosage: 150 MG
     Route: 048
  2. PIQRAY [Suspect]
     Active Substance: ALPELISIB
     Route: 048
  3. PIQRAY [Suspect]
     Active Substance: ALPELISIB
     Indication: PRODUCT USED FOR UNKNOWN INDICATION
     Dosage: 300 MG
     Route: 048

REACTIONS (9)
  - Stomatitis [Unknown]
  - Diarrhoea [Unknown]
  - Weight decreased [Unknown]
  - Chills [Unknown]
  - Vomiting [Unknown]
  - Alopecia [Unknown]
  - Cough [Not Recovered/Not Resolved]
  - Muscular weakness [Unknown]
  - Rash [Unknown]
